FAERS Safety Report 25153199 (Version 1)
Quarter: 2025Q2

REPORT INFORMATION
  Report Type: Spontaneous
  Country: US (occurrence: US)
  Receive Date: 20250403
  Receipt Date: 20250403
  Transmission Date: 20250717
  Serious: No
  Sender: HIKMA
  Company Number: US-HIKMA PHARMACEUTICALS USA INC.-US-H14001-24-12070

PATIENT
  Sex: Female

DRUGS (1)
  1. BUTORPHANOL TARTRATE [Suspect]
     Active Substance: BUTORPHANOL TARTRATE
     Indication: Migraine
     Dosage: 1 DOSAGE FORM, QD
     Route: 045

REACTIONS (6)
  - Eye swelling [Recovered/Resolved]
  - Facial pain [Recovered/Resolved]
  - Headache [Recovered/Resolved]
  - Nausea [Recovered/Resolved]
  - Swelling face [Recovered/Resolved]
  - Product dose omission issue [Unknown]
